FAERS Safety Report 25167688 (Version 1)
Quarter: 2025Q2

REPORT INFORMATION
  Report Type: Spontaneous
  Country: US (occurrence: None)
  Receive Date: 20250406
  Receipt Date: 20250406
  Transmission Date: 20250716
  Serious: Yes (Disabling)
  Sender: FDA-CTU
  Company Number: None

PATIENT
  Age: 47 Year
  Sex: Female
  Weight: 69.75 kg

DRUGS (14)
  1. ZEPBOUND [Suspect]
     Active Substance: TIRZEPATIDE
     Indication: Weight decreased
  2. LAMICTAL [Concomitant]
     Active Substance: LAMOTRIGINE
  3. GEODON [Concomitant]
     Active Substance: ZIPRASIDONE HYDROCHLORIDE\ZIPRASIDONE MESYLATE
  4. WELLBUTRIN [Concomitant]
     Active Substance: BUPROPION HYDROCHLORIDE
  5. BUSPAR [Concomitant]
     Active Substance: BUSPIRONE HYDROCHLORIDE
  6. PROPRANOLOL [Concomitant]
     Active Substance: PROPRANOLOL HYDROCHLORIDE
  7. XANAX [Concomitant]
     Active Substance: ALPRAZOLAM
  8. EMGALITY [Concomitant]
     Active Substance: GALCANEZUMAB-GNLM
  9. TREMFYA [Concomitant]
     Active Substance: GUSELKUMAB
  10. IRON [Concomitant]
     Active Substance: IRON
  11. VITAMINS [Concomitant]
     Active Substance: VITAMINS
  12. VITAMIN B COMPLEX [Concomitant]
     Active Substance: CYANOCOBALAMIN\DEXPANTHENOL\NIACINAMIDE\PYRIDOXINE HYDROCHLORIDE\RIBOFLAVIN 5^-PHOSPHATE SODIUM\THIA
  13. DIETARY SUPPLEMENT [Concomitant]
     Active Substance: DIETARY SUPPLEMENT
  14. VITAMIN D [Concomitant]
     Active Substance: VITAMIN D NOS

REACTIONS (3)
  - Depression [None]
  - Anxiety [None]
  - Suicidal ideation [None]
